FAERS Safety Report 8177438-2 (Version None)
Quarter: 2012Q1

REPORT INFORMATION
  Report Type: 
  Country: None (occurrence: None)
  Receive Date: 20120301
  Receipt Date: 20120224
  Transmission Date: 20120608
  Serious: Yes (Hospitalization)
  Sender: FDA-Public Use
  Company Number: US-GILEAD-2012-0050829

PATIENT
  Age: 58 Year
  Sex: Female

DRUGS (3)
  1. CAYSTON [Suspect]
     Indication: STENOTROPHOMONAS INFECTION
  2. CAYSTON [Suspect]
     Indication: BRONCHIECTASIS
     Dosage: UNK
     Route: 055
     Dates: start: 20120210
  3. CAYSTON [Suspect]
     Indication: PSEUDOMONAS INFECTION
     Dosage: UNK
     Route: 055
     Dates: start: 20120120, end: 20120131

REACTIONS (5)
  - WHEEZING [None]
  - PYREXIA [None]
  - BRONCHIECTASIS [None]
  - PNEUMONIA [None]
  - VOMITING [None]
